FAERS Safety Report 9850793 (Version 1)
Quarter: 2013Q4

REPORT INFORMATION
  Report Type: Spontaneous
  Country: US (occurrence: None)
  Receive Date: 20131226
  Receipt Date: 20131226
  Transmission Date: 20140711
  Serious: Yes (Other)
  Sender: FDA-Public Use
  Company Number: PHEH2013US005307

PATIENT
  Age: 62 Year
  Sex: Male

DRUGS (1)
  1. EXFORGE HCT [Suspect]

REACTIONS (1)
  - Blood pressure increased [None]
